FAERS Safety Report 8541642-1 (Version None)
Quarter: 2012Q3

REPORT INFORMATION
  Report Type: 
  Country: None (occurrence: None)
  Receive Date: 20120726
  Receipt Date: 20120726
  Transmission Date: 20120928
  Serious: Yes (Hospitalization)
  Sender: FDA-Public Use
  Company Number: US-GLAXOSMITHKLINE-A0982843A

PATIENT
  Age: 41 Year
  Sex: Female

DRUGS (1)
  1. FLOLAN [Suspect]
     Indication: PRODUCT USED FOR UNKNOWN INDICATION
     Dosage: 15NG CONTINUOUS
     Route: 042
     Dates: start: 20120430

REACTIONS (4)
  - VOMITING [None]
  - NAUSEA [None]
  - ABDOMINAL PAIN [None]
  - SYSTEMIC LUPUS ERYTHEMATOSUS [None]
